FAERS Safety Report 5519860-6 (Version None)
Quarter: 2007Q4

REPORT INFORMATION
  Report Type: 
  Country: None (occurrence: None)
  Receive Date: 20071116
  Receipt Date: 20071008
  Transmission Date: 20080405
  Serious: Yes (Other)
  Sender: FDA-Public Use
  Company Number: A0684396A

PATIENT
  Sex: Female

DRUGS (4)
  1. COREG CR [Suspect]
     Route: 048
     Dates: start: 20070601
  2. COREG [Suspect]
     Route: 048
     Dates: start: 20070101, end: 20070101
  3. ATENOLOL [Concomitant]
     Dates: end: 20070601
  4. INSULIN [Concomitant]

REACTIONS (2)
  - BLOOD GLUCOSE INCREASED [None]
  - HYPOGLYCAEMIA [None]
